FAERS Safety Report 18698001 (Version 2)
Quarter: 2021Q1

REPORT INFORMATION
  Report Type: Report from Study
  Country: None (occurrence: US)
  Receive Date: 20210105
  Receipt Date: 20210107
  Transmission Date: 20210419
  Serious: Yes (Hospitalization)
  Sender: FDA-Public Use
  Company Number: US-ABBVIE-20K-163-3712027-00

PATIENT
  Age: 66 Year
  Sex: Male

DRUGS (1)
  1. VENCLEXTA [Suspect]
     Active Substance: VENETOCLAX
     Indication: ACUTE MYELOID LEUKAEMIA
     Route: 048
     Dates: start: 202012

REACTIONS (8)
  - Asthenia [Unknown]
  - Platelet transfusion [Unknown]
  - Electrocardiogram QRS complex prolonged [Unknown]
  - Hospitalisation [Unknown]
  - Sleep disorder [Unknown]
  - Gait disturbance [Unknown]
  - Depression [Unknown]
  - Packed red blood cell transfusion [Unknown]

NARRATIVE: CASE EVENT DATE: 202012
